FAERS Safety Report 24381041 (Version 1)
Quarter: 2024Q3

REPORT INFORMATION
  Report Type: Spontaneous
  Country: CA (occurrence: CA)
  Receive Date: 20240930
  Receipt Date: 20240930
  Transmission Date: 20241017
  Serious: Yes (Other)
  Sender: AMGEN
  Company Number: CA-AMGEN-CANSP2024191205

PATIENT
  Age: 18 Year
  Sex: Male

DRUGS (3)
  1. ADALIMUMAB [Suspect]
     Active Substance: ADALIMUMAB
     Indication: Crohn^s disease
     Dosage: 40 MILLIGRAM, Q2WK
     Route: 058
     Dates: start: 20221111, end: 2024
  2. ADALIMUMAB [Suspect]
     Active Substance: ADALIMUMAB
     Dosage: 40 MILLIGRAM, Q2WK
     Route: 058
     Dates: start: 2024
  3. METHOTREXATE [Concomitant]
     Active Substance: METHOTREXATE
     Dosage: UNK
     Dates: start: 202211, end: 202301

REACTIONS (6)
  - Ligament rupture [Recovering/Resolving]
  - Haematochezia [Unknown]
  - Post procedural diarrhoea [Recovered/Resolved]
  - Abdominal distension [Recovered/Resolved]
  - Haemorrhoids [Unknown]
  - Dizziness [Unknown]

NARRATIVE: CASE EVENT DATE: 20240701
